FAERS Safety Report 4626961-3 (Version None)
Quarter: 2005Q2

REPORT INFORMATION
  Report Type: 
  Country: None (occurrence: None)
  Receive Date: 20050405
  Receipt Date: 20050328
  Transmission Date: 20051028
  Serious: Yes (Hospitalization)
  Sender: FDA-Public Use
  Company Number: JP-JNJFOC-20050106221

PATIENT
  Sex: Male

DRUGS (9)
  1. LEUSTATIN [Suspect]
     Route: 041
  2. LEUSTATIN [Suspect]
     Route: 041
  3. LEUSTATIN [Suspect]
     Route: 041
  4. LEUSTATIN [Suspect]
     Route: 041
  5. PREDNISONE [Concomitant]
  6. AMRUBICIN HYDROCHLORIDE [Concomitant]
  7. RITUXIMAB [Concomitant]
  8. DIGOXIN [Concomitant]
     Indication: ATRIAL FIBRILLATION
  9. ASPIRIN [Concomitant]
     Indication: ATRIAL FIBRILLATION

REACTIONS (3)
  - ASCITES [None]
  - ILEUS [None]
  - NEUROPATHY PERIPHERAL [None]
